FAERS Safety Report 15200809 (Version 1)
Quarter: 2018Q3

REPORT INFORMATION
  Report Type: Spontaneous
  Country: IT (occurrence: IT)
  Receive Date: 20180726
  Receipt Date: 20180726
  Transmission Date: 20181010
  Serious: Yes (Hospitalization, Other)
  Sender: FDA-Public Use
  Company Number: IT-SA-2018SA194991

PATIENT
  Age: 77 Year
  Sex: Female

DRUGS (9)
  1. TELMISARTAN ACTAVIS [Concomitant]
     Active Substance: TELMISARTAN
  2. RAMIPRIL ABC [Concomitant]
     Active Substance: RAMIPRIL
  3. TOUJEO [Suspect]
     Active Substance: INSULIN GLARGINE
     Indication: TYPE 2 DIABETES MELLITUS
     Dosage: 6 DF, QD
     Route: 058
     Dates: start: 20180101, end: 20180521
  4. INEGY [Concomitant]
     Active Substance: EZETIMIBE\SIMVASTATIN
  5. ASACOL [Concomitant]
     Active Substance: MESALAMINE
  6. HUMALOG [Suspect]
     Active Substance: INSULIN LISPRO
     Indication: TYPE 2 DIABETES MELLITUS
     Route: 058
     Dates: start: 20180101, end: 20180521
  7. FOLIC ACID. [Concomitant]
     Active Substance: FOLIC ACID
  8. SERTRALINE [Concomitant]
     Active Substance: SERTRALINE HYDROCHLORIDE
  9. NIFEREX FORTE [Concomitant]

REACTIONS (5)
  - Asthenia [Unknown]
  - Metabolic acidosis [Unknown]
  - Loss of consciousness [Unknown]
  - Hypoglycaemia [Unknown]
  - Hyperkalaemia [Unknown]

NARRATIVE: CASE EVENT DATE: 20180521
